FAERS Safety Report 7392539-4 (Version None)
Quarter: 2011Q2

REPORT INFORMATION
  Report Type: 
  Country: None (occurrence: None)
  Receive Date: 20110404
  Receipt Date: 20110324
  Transmission Date: 20111010
  Serious: Yes (Hospitalization)
  Sender: FDA-Public Use
  Company Number: US-EISAI INC-E3810-04543-SPO-US

PATIENT
  Age: 79 Year
  Sex: Female

DRUGS (1)
  1. ACIPHEX [Suspect]
     Route: 048
     Dates: start: 20110201, end: 20110317

REACTIONS (2)
  - SCINTILLATING SCOTOMA [None]
  - HEADACHE [None]
